FAERS Safety Report 9695144 (Version 1)
Quarter: 2013Q4

REPORT INFORMATION
  Report Type: Spontaneous
  Country: US (occurrence: US)
  Receive Date: 20131119
  Receipt Date: 20131119
  Transmission Date: 20140711
  Serious: Yes (Other)
  Sender: FDA-Public Use
  Company Number: US-MYLANLABS-2013S1025365

PATIENT
  Age: 70 Year
  Sex: Female

DRUGS (4)
  1. METOPROLOL TARTRATE TABLETS, USP [Suspect]
     Indication: BLOOD PRESSURE
     Route: 048
     Dates: start: 201210
  2. METOPROLOL TARTRATE TABLETS, USP [Suspect]
     Indication: ARRHYTHMIA
     Route: 048
     Dates: start: 201210
  3. DIOVAN [Concomitant]
     Route: 048
  4. XANAX [Concomitant]
     Dates: start: 201210

REACTIONS (1)
  - Chest pain [Recovered/Resolved]
